FAERS Safety Report 14953717 (Version 1)
Quarter: 2018Q2

REPORT INFORMATION
  Report Type: Spontaneous
  Country: US (occurrence: US)
  Receive Date: 20180530
  Receipt Date: 20180530
  Transmission Date: 20180711
  Serious: No
  Sender: FDA-Public Use
  Company Number: US-BAYER-2018-092360

PATIENT
  Age: 62 Year
  Sex: Female
  Weight: 112 kg

DRUGS (2)
  1. CLARITIN [Suspect]
     Active Substance: LORATADINE
     Route: 048
  2. SUDAFED [Concomitant]
     Active Substance: PSEUDOEPHEDRINE HYDROCHLORIDE
     Indication: OEDEMA MUCOSAL

REACTIONS (5)
  - Abdominal distension [Recovered/Resolved]
  - Product use in unapproved indication [Unknown]
  - Hypersensitivity [Recovered/Resolved]
  - Pruritus generalised [Recovered/Resolved]
  - Off label use [Unknown]
